FAERS Safety Report 22604874 (Version 1)
Quarter: 2023Q2

REPORT INFORMATION
  Report Type: Spontaneous
  Country: US (occurrence: US)
  Receive Date: 20230615
  Receipt Date: 20230615
  Transmission Date: 20230721
  Serious: Yes (Hospitalization)
  Sender: FDA-Public Use
  Company Number: US-STRIDES ARCOLAB LIMITED-2023SP008075

PATIENT
  Age: 7 Decade
  Sex: Male

DRUGS (7)
  1. PREDNISOLONE [Suspect]
     Active Substance: PREDNISOLONE
     Indication: Mantle cell lymphoma
     Dosage: 40 MILLIGRAM DAILY
     Route: 048
  2. PREDNISOLONE [Suspect]
     Active Substance: PREDNISOLONE
     Dosage: UNK, WAS TAPERED
     Route: 065
  3. RITUXIMAB [Suspect]
     Active Substance: RITUXIMAB
     Indication: Mantle cell lymphoma
     Dosage: UNK, MOST RECENT DOSE 15 MONTHS BEFORE CURRENT HOSPITALIZATION
     Route: 065
  4. ACALABRUTINIB [Suspect]
     Active Substance: ACALABRUTINIB
     Indication: Mantle cell lymphoma
     Dosage: UNK
     Route: 065
  5. RUXOLITINIB [Suspect]
     Active Substance: RUXOLITINIB
     Indication: Mantle cell lymphoma
     Dosage: UNK
     Route: 048
  6. ATOVAQUONE [Concomitant]
     Active Substance: ATOVAQUONE
     Indication: Antifungal prophylaxis
     Dosage: 1500 MILLIGRAM DAILY
     Route: 048
  7. ATOVAQUONE [Concomitant]
     Active Substance: ATOVAQUONE
     Indication: Babesiosis
     Dosage: 750 MILLIGRAM, BID
     Route: 048

REACTIONS (2)
  - Babesiosis [Recovered/Resolved]
  - Disease recurrence [Recovered/Resolved]
